FAERS Safety Report 6279699-3 (Version None)
Quarter: 2009Q3

REPORT INFORMATION
  Report Type: 
  Country: None (occurrence: None)
  Receive Date: 20090723
  Receipt Date: 20090714
  Transmission Date: 20100115
  Serious: No
  Sender: FDA-Public Use
  Company Number: US-CELGENEUS-163-20785-09042389

PATIENT
  Sex: Female
  Weight: 105.6 kg

DRUGS (12)
  1. THALOMID [Suspect]
     Indication: MULTIPLE MYELOMA
     Route: 048
     Dates: start: 20081213, end: 20090430
  2. THALOMID [Suspect]
     Route: 048
     Dates: start: 20090514
  3. BENAZEPRIL HYDROCHLORIDE [Concomitant]
     Indication: HYPERTENSION
     Route: 065
  4. LOPRESSOR [Concomitant]
     Indication: HYPERTENSION
     Route: 065
  5. FLOMAX [Concomitant]
     Indication: HYPERTENSION
     Route: 065
  6. BENICAR [Concomitant]
     Indication: HYPERTENSION
     Route: 065
  7. ARANESP [Concomitant]
     Route: 065
  8. IRON [Concomitant]
     Route: 051
  9. LASIX [Concomitant]
     Indication: DRUG USE FOR UNKNOWN INDICATION
     Route: 065
  10. CHLORTHALIDONE [Concomitant]
     Indication: DRUG USE FOR UNKNOWN INDICATION
     Route: 065
  11. MELPHALAN [Concomitant]
     Indication: MULTIPLE MYELOMA
     Dates: start: 20081201
  12. MELPHALAN [Concomitant]

REACTIONS (4)
  - ANAEMIA [None]
  - RENAL DISORDER [None]
  - TREATMENT NONCOMPLIANCE [None]
  - UTERINE LEIOMYOMA [None]
